FAERS Safety Report 4603664-2 (Version None)
Quarter: 2005Q1

REPORT INFORMATION
  Report Type: 
  Country: None (occurrence: None)
  Receive Date: 20050308
  Receipt Date: 20050308
  Transmission Date: 20050727
  Serious: Yes (Hospitalization)
  Sender: FDA-Public Use
  Company Number: None

PATIENT
  Age: 76 Year
  Sex: Male
  Weight: 76.6579 kg

DRUGS (2)
  1. IRESSA [Suspect]
     Indication: RENAL CANCER METASTATIC
     Dosage: 250 MG PO DAILY
     Route: 048
     Dates: start: 20050225
  2. PEG-INTRON [Suspect]
     Indication: RENAL CANCER METASTATIC
     Dosage: 6.0 UG/KG SQ WK
     Dates: start: 20050225

REACTIONS (4)
  - BLOOD ALBUMIN INCREASED [None]
  - BLOOD CALCIUM INCREASED [None]
  - DEHYDRATION [None]
  - NAUSEA [None]
